FAERS Safety Report 19194383 (Version 1)
Quarter: 2021Q2

REPORT INFORMATION
  Report Type: Spontaneous
  Country: US (occurrence: US)
  Receive Date: 20210429
  Receipt Date: 20210429
  Transmission Date: 20210717
  Serious: Yes (Other)
  Sender: FDA-Public Use
  Company Number: None

PATIENT
  Age: 63 Year
  Sex: Male
  Weight: 84.6 kg

DRUGS (11)
  1. CETIRIZINE [Concomitant]
     Active Substance: CETIRIZINE HYDROCHLORIDE
  2. MELATONIN [Concomitant]
     Active Substance: MELATONIN
  3. GLUTICOSAMINE + CHONDROITIN/MSM COMPLEX [Concomitant]
  4. VITAMIN D3 [Concomitant]
     Active Substance: CHOLECALCIFEROL
  5. MONTELUKAST SOD 10MG [Concomitant]
     Active Substance: MONTELUKAST SODIUM
  6. FLUTICASONE. [Concomitant]
     Active Substance: FLUTICASONE
  7. TUMERIC CUR CUMIN COMPLEX [Concomitant]
  8. DESCOVY [Suspect]
     Active Substance: EMTRICITABINE\TENOFOVIR ALAFENAMIDE FUMARATE
     Indication: PROPHYLAXIS AGAINST HIV INFECTION
     Dosage: ?          QUANTITY:1 CAPSULE(S);?
     Route: 048
     Dates: start: 20200101, end: 20200831
  9. VALACYCLOVIR HAL 1 GR [Concomitant]
  10. TRUVADA [Suspect]
     Active Substance: EMTRICITABINE\TENOFOVIR DISOPROXIL FUMARATE
     Indication: PROPHYLAXIS AGAINST HIV INFECTION
     Dosage: ??          QUANTITY:1 CAPSULE(S);?
     Route: 048
     Dates: start: 20160331, end: 20191231
  11. LEVOTHYROXINE 50 MCG [Concomitant]
     Active Substance: LEVOTHYROXINE

REACTIONS (2)
  - Gingival disorder [None]
  - Back pain [None]
